FAERS Safety Report 5660246-1 (Version None)
Quarter: 2008Q1

REPORT INFORMATION
  Report Type: 
  Country: None (occurrence: None)
  Receive Date: 20080306
  Receipt Date: 20080304
  Transmission Date: 20080703
  Serious: Yes (Life-Threatening, Hospitalization)
  Sender: FDA-Public Use
  Company Number: SP01826

PATIENT
  Age: 76 Year

DRUGS (6)
  1. MOVIPREP [Suspect]
     Dosage: ORAL
     Route: 048
     Dates: start: 20080206, end: 20080207
  2. ATENOLOL [Concomitant]
  3. ATORVASTATIN CALCIUM [Concomitant]
  4. BENDROFLUMETHIAZIDE [Concomitant]
  5. METFORMIN HCL [Concomitant]
  6. RAMIPRIL [Concomitant]

REACTIONS (3)
  - BLOOD SODIUM DECREASED [None]
  - CONFUSIONAL STATE [None]
  - CONVULSION [None]
